FAERS Safety Report 12448472 (Version 1)
Quarter: 2016Q2

REPORT INFORMATION
  Report Type: Report from Study
  Country: JP (occurrence: JP)
  Receive Date: 20160608
  Receipt Date: 20160608
  Transmission Date: 20160815
  Serious: Yes (Death, Hospitalization, Other)
  Sender: FDA-Public Use
  Company Number: JP-EISAI MEDICAL RESEARCH-EC-2016-017443

PATIENT
  Age: 60 Year
  Sex: Male
  Weight: 77 kg

DRUGS (31)
  1. MERISLON [Concomitant]
     Active Substance: BETAHISTINE MESILATE
  2. LYRICA [Concomitant]
     Active Substance: PREGABALIN
  3. ZYLORIC [Concomitant]
     Active Substance: ALLOPURINOL
  4. LENVIMA [Suspect]
     Active Substance: LENVATINIB
     Route: 048
     Dates: start: 20150609, end: 20150624
  5. ROCALTROL [Concomitant]
     Active Substance: CALCITRIOL
  6. AMOXAN [Concomitant]
     Active Substance: AMOXAPINE
  7. CEPHADOL [Concomitant]
     Active Substance: DIPHENIDOL HYDROCHLORIDE
  8. RIBALL [Concomitant]
     Active Substance: ALLOPURINOL
  9. RHYTHMY [Concomitant]
     Active Substance: RILMAZAFONE HYDROCHLORIDE
  10. SEIBULE [Concomitant]
     Active Substance: MIGLITOL
  11. MAGLAX [Concomitant]
     Active Substance: MAGNESIUM OXIDE
  12. BARACLUDE [Concomitant]
     Active Substance: ENTECAVIR
  13. ALMYLAR [Concomitant]
     Active Substance: ATENOLOL
  14. AUZEI [Concomitant]
     Active Substance: CARBAZOCHROME SODIUM SULFONATE
  15. SOLANAX [Concomitant]
     Active Substance: ALPRAZOLAM
  16. GOODMIN [Concomitant]
     Active Substance: BROTIZOLAM
  17. NOSLAN [Concomitant]
  18. LENVIMA [Suspect]
     Active Substance: LENVATINIB
     Indication: PAPILLARY THYROID CANCER
     Route: 048
     Dates: start: 20150528, end: 20150528
  19. THYRADIN S [Concomitant]
     Active Substance: LEVOTHYROXINE SODIUM
  20. RABEPRAZOLE NA [Concomitant]
     Active Substance: RABEPRAZOLE SODIUM
  21. TRANEXAMIC ACID. [Concomitant]
     Active Substance: TRANEXAMIC ACID
  22. NESINA [Concomitant]
     Active Substance: ALOGLIPTIN BENZOATE
  23. ATORVASTATIN [Concomitant]
     Active Substance: ATORVASTATIN
  24. ZOLPIDEM TARTRATE. [Concomitant]
     Active Substance: ZOLPIDEM TARTRATE
  25. LEVOTHYROXINE SODIUM HYDRATE [Concomitant]
  26. LIPITOR [Concomitant]
     Active Substance: ATORVASTATIN CALCIUM
  27. AMLODIN [Concomitant]
     Active Substance: AMLODIPINE BESYLATE
  28. LOPERAN [Concomitant]
  29. CEREKINON [Concomitant]
     Active Substance: TRIMEBUTINE
  30. LANSOPRAZOLE. [Concomitant]
     Active Substance: LANSOPRAZOLE
  31. TENORMIN [Concomitant]
     Active Substance: ATENOLOL

REACTIONS (3)
  - Malignant neoplasm progression [Fatal]
  - Dehydration [Recovered/Resolved]
  - Delirium [Recovered/Resolved]

NARRATIVE: CASE EVENT DATE: 20150528
